FAERS Safety Report 5207733-8 (Version None)
Quarter: 2006Q4

REPORT INFORMATION
  Report Type: 
  Country: None (occurrence: None)
  Receive Date: 20061030
  Receipt Date: 20060918
  Transmission Date: 20070319
  Serious: No
  Sender: FDA-Public Use
  Company Number: 2006CT000734

PATIENT
  Age: 53 Year
  Sex: Female
  Weight: 69 kg

DRUGS (13)
  1. VENTAVIS [Suspect]
     Indication: PULMONARY HYPERTENSION
     Dosage: 5 UG; 6XD; INH
     Dates: start: 20060915
  2. LACTULOSE [Concomitant]
  3. OXYGEN [Concomitant]
  4. FUROSEMIDE [Concomitant]
  5. SILDENAFIL CITRATE [Concomitant]
  6. STARLIX [Concomitant]
  7. K-DUR 10 [Concomitant]
  8. LISINOPRIL [Concomitant]
  9. GLYBURIDE [Concomitant]
  10. LEVEMIR [Concomitant]
  11. TEMAZEPAM [Concomitant]
  12. AMITRIPTYLINE HCL [Concomitant]
  13. OXYCONTIN [Concomitant]

REACTIONS (3)
  - DIZZINESS [None]
  - HEADACHE [None]
  - ORAL PAIN [None]
